FAERS Safety Report 9363902 (Version 1)
Quarter: 2013Q2

REPORT INFORMATION
  Report Type: Spontaneous
  Country: GB (occurrence: None)
  Receive Date: 20130618
  Receipt Date: 20130618
  Transmission Date: 20140414
  Serious: Yes (Other)
  Sender: FDA-Public Use
  Company Number: AUR-APL-2013-04853

PATIENT
  Age: 5 Month
  Sex: Female
  Weight: 5.47 kg

DRUGS (3)
  1. AMOXICILLIN (AMOXICILLIN) [Suspect]
     Indication: PRODUCT USED FOR UNKNOWN INDICATION
     Dates: start: 20130521
  2. PARACETAMOL (PARACETAMOL) [Concomitant]
  3. ZEROBASE (PARAFFIN, LIQUID) [Concomitant]

REACTIONS (1)
  - Rash macular [None]
